FAERS Safety Report 8002732-5 (Version None)
Quarter: 2011Q4

REPORT INFORMATION
  Report Type: 
  Country: None (occurrence: None)
  Receive Date: 20111222
  Receipt Date: 20111213
  Transmission Date: 20120403
  Serious: Yes (Other)
  Sender: FDA-Public Use
  Company Number: FR-ELI_LILLY_AND_COMPANY-FR201112003687

PATIENT

DRUGS (1)
  1. GEMZAR [Suspect]
     Indication: LUNG NEOPLASM MALIGNANT
     Dosage: 3 MG/KG, UNKNOWN
     Route: 055

REACTIONS (3)
  - FATIGUE [None]
  - DYSPNOEA [None]
  - VOMITING [None]
